FAERS Safety Report 8557924-3 (Version None)
Quarter: 2012Q3

REPORT INFORMATION
  Report Type: 
  Country: None (occurrence: None)
  Receive Date: 20120801
  Receipt Date: 20120723
  Transmission Date: 20120928
  Serious: Yes (Other)
  Sender: FDA-Public Use
  Company Number: IE-ASTRAZENECA-2012SE15539

PATIENT
  Age: 21864 Day
  Sex: Male
  Weight: 86 kg

DRUGS (4)
  1. SYMBICORT [Suspect]
     Indication: COUGH
     Dosage: 400/12, TWO TIMES A DAY
     Route: 055
     Dates: start: 20120223, end: 20120229
  2. SYMBICORT [Suspect]
     Indication: ASTHMA
     Dosage: 400/12, TWO TIMES A DAY
     Route: 055
     Dates: start: 20120223, end: 20120229
  3. GLUCOPHAGE [Concomitant]
     Indication: TYPE 2 DIABETES MELLITUS
     Route: 048
  4. ATENOLOL [Concomitant]
     Indication: HYPERTENSION
     Route: 048

REACTIONS (1)
  - DYSPNOEA [None]
